FAERS Safety Report 4779696-0 (Version None)
Quarter: 2005Q3

REPORT INFORMATION
  Report Type: 
  Country: None (occurrence: None)
  Receive Date: 20050914
  Receipt Date: 20040721
  Transmission Date: 20060218
  Serious: Yes (Death, Hospitalization)
  Sender: FDA-Public Use
  Company Number: 163-20785-03020206

PATIENT
  Age: 81 Year
  Sex: Female

DRUGS (1)
  1. THALOMID [Suspect]
     Indication: MYELOPROLIFERATIVE DISORDER
     Dosage: 50 MG, QHS, ORAL
     Route: 048
     Dates: start: 20020828, end: 20031113

REACTIONS (4)
  - ANAEMIA [None]
  - CARDIO-RESPIRATORY ARREST [None]
  - DEATH [None]
  - DISEASE PROGRESSION [None]
